FAERS Safety Report 10047042 (Version 3)
Quarter: 2014Q2

REPORT INFORMATION
  Report Type: Spontaneous
  Country: GB (occurrence: GB)
  Receive Date: 20140331
  Receipt Date: 20140404
  Transmission Date: 20141212
  Serious: Yes (Hospitalization, Other)
  Sender: FDA-Public Use
  Company Number: GB-SA-2014SA023360

PATIENT
  Sex: Female
  Weight: 69.8 kg

DRUGS (1)
  1. MYOZYME [Suspect]
     Indication: GLYCOGEN STORAGE DISEASE TYPE II
     Dosage: DOSE :1400 MG
     Route: 042
     Dates: start: 201009

REACTIONS (4)
  - Abortion spontaneous [Unknown]
  - Anxiety [Unknown]
  - Abdominal pain [Unknown]
  - Exposure during pregnancy [Unknown]
